FAERS Safety Report 25476279 (Version 1)
Quarter: 2025Q2

REPORT INFORMATION
  Report Type: Spontaneous
  Country: BE (occurrence: BE)
  Receive Date: 20250625
  Receipt Date: 20250625
  Transmission Date: 20250717
  Serious: Yes (Hospitalization)
  Sender: NOVO NORDISK
  Company Number: BE-NOVOPROD-1441106

PATIENT
  Age: 57 Year
  Sex: Female
  Weight: 78 kg

DRUGS (11)
  1. RYBELSUS [Suspect]
     Active Substance: SEMAGLUTIDE
     Indication: Overweight
  2. RYBELSUS [Suspect]
     Active Substance: SEMAGLUTIDE
     Indication: Type 2 diabetes mellitus
     Dosage: 3 MG, QD
     Route: 048
     Dates: start: 20250218, end: 20250429
  3. METFORMIN [Concomitant]
     Active Substance: METFORMIN HYDROCHLORIDE
     Indication: Type 2 diabetes mellitus
     Dosage: 500 MG, QD
     Route: 048
  4. STEOVIT FORTE [Concomitant]
     Indication: Osteoporosis
     Route: 048
  5. XARELTO [Concomitant]
     Active Substance: RIVAROXABAN
     Indication: Deep vein thrombosis
     Dosage: 10 MG, QD
     Route: 048
  6. BISOPROLOL [Concomitant]
     Active Substance: BISOPROLOL
     Indication: Hypertension
     Dosage: 5 MG, BID
     Route: 048
  7. BEMPEDOIC ACID [Concomitant]
     Active Substance: BEMPEDOIC ACID
     Indication: Hypercholesterolaemia
     Route: 048
     Dates: start: 2022
  8. LIORESAL [Concomitant]
     Active Substance: BACLOFEN
     Indication: Pain
     Route: 048
  9. SULPIRIDE [Concomitant]
     Active Substance: SULPIRIDE
     Indication: Pain
     Dosage: 50 MG, BID
     Route: 048
  10. EFFEXOR XR [Concomitant]
     Active Substance: VENLAFAXINE HYDROCHLORIDE
     Indication: Depression
     Dosage: 75 MG, QD
     Route: 048
     Dates: start: 2022
  11. ALLOPURINOL [Concomitant]
     Active Substance: ALLOPURINOL

REACTIONS (3)
  - Tubulointerstitial nephritis [Recovering/Resolving]
  - Acute kidney injury [Recovering/Resolving]
  - Nephrolithiasis [Unknown]

NARRATIVE: CASE EVENT DATE: 20250429
